FAERS Safety Report 5288875-8 (Version None)
Quarter: 2007Q2

REPORT INFORMATION
  Report Type: 
  Country: None (occurrence: None)
  Receive Date: 20070405
  Receipt Date: 20070307
  Transmission Date: 20071010
  Serious: Yes (Hospitalization, Other)
  Sender: FDA-Public Use
  Company Number: US-PFIZER INC-2007018251

PATIENT
  Sex: Male
  Weight: 83.9 kg

DRUGS (2)
  1. CELEBREX [Suspect]
     Indication: OSTEOARTHRITIS
     Route: 048
  2. CELEBREX [Suspect]

REACTIONS (2)
  - AORTIC VALVE REPLACEMENT [None]
  - MYOCARDIAL INFARCTION [None]
